FAERS Safety Report 7877520-0 (Version None)
Quarter: 2011Q4

REPORT INFORMATION
  Report Type: 
  Country: None (occurrence: None)
  Receive Date: 20111031
  Receipt Date: 20111026
  Transmission Date: 20120403
  Serious: Yes (Hospitalization)
  Sender: FDA-Public Use
  Company Number: JP-SANOFI-AVENTIS-2011SA051281

PATIENT
  Age: 74 Year
  Sex: Male
  Weight: 60 kg

DRUGS (10)
  1. AMLODIPINE [Concomitant]
  2. PLAVIX [Suspect]
     Route: 048
     Dates: start: 20110722, end: 20110809
  3. DEXTRAN INJ [Concomitant]
     Dates: start: 20110721, end: 20110725
  4. DIOVAN [Concomitant]
  5. RABEPRAZOLE SODIUM [Concomitant]
  6. SENNA [Concomitant]
     Indication: CONSTIPATION
  7. ARGATROBAN [Concomitant]
     Dates: start: 20110721, end: 20110727
  8. RADICUT [Concomitant]
     Dates: start: 20110721, end: 20110725
  9. ASPIRIN [Concomitant]
     Indication: CEREBRAL INFARCTION
     Route: 048
  10. HALCION [Concomitant]

REACTIONS (2)
  - RENAL IMPAIRMENT [None]
  - PYREXIA [None]
